FAERS Safety Report 6594033-7 (Version None)
Quarter: 2010Q1

REPORT INFORMATION
  Report Type: 
  Country: None (occurrence: None)
  Receive Date: 20100218
  Receipt Date: 20100218
  Transmission Date: 20100710
  Serious: Yes (Hospitalization)
  Sender: FDA-Public Use
  Company Number: None

PATIENT
  Age: 64 Year
  Sex: Male

DRUGS (1)
  1. WARFARIN SODIUM [Suspect]
     Indication: ATRIAL FIBRILLATION
     Dosage: PO
     Route: 048
     Dates: start: 20080430, end: 20090227

REACTIONS (4)
  - ANAEMIA [None]
  - GASTRIC HAEMORRHAGE [None]
  - GASTRIC ULCER [None]
  - INTERNATIONAL NORMALISED RATIO INCREASED [None]
